FAERS Safety Report 7369483-1 (Version None)
Quarter: 2011Q1

REPORT INFORMATION
  Report Type: 
  Country: None (occurrence: None)
  Receive Date: 20110321
  Receipt Date: 20110321
  Transmission Date: 20110831
  Serious: Yes (Hospitalization)
  Sender: FDA-Public Use
  Company Number: None

PATIENT
  Age: 63 Year
  Sex: Female
  Weight: 90.72 kg

DRUGS (2)
  1. HEPARIN [Suspect]
     Indication: SURGERY
     Dosage: 600 UNITS PER HOUR IV
     Route: 042
     Dates: start: 20100923, end: 20100925
  2. HEPARIN [Suspect]
     Indication: CARDIOVASCULAR DISORDER
     Dosage: 600 UNITS PER HOUR IV
     Route: 042
     Dates: start: 20100923, end: 20100925

REACTIONS (4)
  - EXCORIATION [None]
  - ANAL HAEMORRHAGE [None]
  - GASTRITIS [None]
  - GASTRIC HAEMORRHAGE [None]
